FAERS Safety Report 8186138-4 (Version None)
Quarter: 2012Q1

REPORT INFORMATION
  Report Type: 
  Country: None (occurrence: None)
  Receive Date: 20120306
  Receipt Date: 20120302
  Transmission Date: 20120608
  Serious: No
  Sender: FDA-Public Use
  Company Number: US-PFIZER INC-2012057072

PATIENT
  Sex: Female
  Weight: 75.737 kg

DRUGS (3)
  1. CELEBREX [Suspect]
     Indication: ARTHRALGIA
  2. DIOVAN [Concomitant]
     Indication: HYPERTENSION
     Dosage: 160 MG, DAILY
  3. CELEBREX [Suspect]
     Indication: ARTHRITIS
     Dosage: 200 MG, DAILY
     Dates: end: 20120201

REACTIONS (3)
  - LACERATION [None]
  - SKIN ATROPHY [None]
  - PAIN [None]
